FAERS Safety Report 20099998 (Version 1)
Quarter: 2021Q4

REPORT INFORMATION
  Report Type: Spontaneous
  Country: US (occurrence: US)
  Receive Date: 20211123
  Receipt Date: 20211123
  Transmission Date: 20220303
  Serious: No
  Sender: FDA-Public Use
  Company Number: US-Ipsen Biopharmaceuticals, Inc.-2021-28704

PATIENT
  Age: 64 Year
  Sex: Female

DRUGS (8)
  1. DYSPORT [Suspect]
     Active Substance: ABOBOTULINUMTOXINA
     Indication: Skin wrinkling
     Dosage: 32 IU: 20 UNITS ON GLABELLA; 12 UNITS ON FRONTALIS/UPPER HALF OF FOREHEAD
     Route: 065
     Dates: start: 20211027, end: 20211027
  2. DYSPORT [Suspect]
     Active Substance: ABOBOTULINUMTOXINA
     Indication: Skin wrinkling
  3. DYSPORT [Suspect]
     Active Substance: ABOBOTULINUMTOXINA
     Indication: Off label use
  4. HYALURONIC ACID\LIDOCAINE [Suspect]
     Active Substance: HYALURONIC ACID\LIDOCAINE
     Indication: Skin wrinkling
     Dosage: 2ML DIVIDED EQUALLY IN BOTH NLFS AND MARIONETTE LINES
     Route: 065
     Dates: start: 20211027
  5. HYALURONIC ACID\LIDOCAINE [Suspect]
     Active Substance: HYALURONIC ACID\LIDOCAINE
     Indication: Skin wrinkling
  6. METOPROLOL [Concomitant]
     Active Substance: METOPROLOL
     Dosage: DOSE NOT REPORTED
     Route: 065
  7. VALSARTAN [Concomitant]
     Active Substance: VALSARTAN
     Dosage: DOSE NOT REPORTED
     Route: 065
  8. FENOFIBRATE [Concomitant]
     Active Substance: FENOFIBRATE
     Dosage: DOSE NOT REPORTED
     Route: 065

REACTIONS (3)
  - Periorbital swelling [Not Recovered/Not Resolved]
  - Off label use [Unknown]
  - Product preparation error [Unknown]

NARRATIVE: CASE EVENT DATE: 20211027
